FAERS Safety Report 20043865 (Version 2)
Quarter: 2021Q4

REPORT INFORMATION
  Report Type: Report from Study
  Country: US (occurrence: US)
  Receive Date: 20211108
  Receipt Date: 20211204
  Transmission Date: 20220303
  Serious: No
  Sender: FDA-Public Use
  Company Number: US-NOVARTISTESTPH-NVSC2021US252487

PATIENT
  Sex: Female

DRUGS (1)
  1. PIQRAY [Suspect]
     Active Substance: ALPELISIB
     Indication: Product used for unknown indication
     Dosage: UNK
     Route: 048
     Dates: start: 20211028

REACTIONS (7)
  - Taste disorder [Unknown]
  - Liver disorder [Unknown]
  - Gallbladder disorder [Unknown]
  - Duodenogastric reflux [Unknown]
  - Skin haemorrhage [Unknown]
  - Vomiting [Unknown]
  - Nausea [Unknown]
